FAERS Safety Report 9212748 (Version 1)
Quarter: 2013Q2

REPORT INFORMATION
  Report Type: Spontaneous
  Country: IN (occurrence: IN)
  Receive Date: 20130405
  Receipt Date: 20130405
  Transmission Date: 20140414
  Serious: Yes (Death)
  Sender: FDA-Public Use
  Company Number: IN-009507513-1304IND000643

PATIENT
  Age: 55 Year
  Sex: 0

DRUGS (1)
  1. JANUMET [Suspect]
     Dosage: 50/500 MG, QD
     Route: 048

REACTIONS (2)
  - Death [Fatal]
  - Fall [Unknown]
